FAERS Safety Report 4713043-5 (Version None)
Quarter: 2005Q3

REPORT INFORMATION
  Report Type: 
  Country: None (occurrence: None)
  Receive Date: 20050711
  Receipt Date: 20050627
  Transmission Date: 20060218
  Serious: Yes (Hospitalization)
  Sender: FDA-Public Use
  Company Number: 2005022889

PATIENT
  Age: 62 Year
  Sex: Female

DRUGS (2)
  1. CELEBREX [Suspect]
     Indication: OSTEOARTHRITIS
     Dosage: 200 MG (200  MG 1 IN 1 D) ORAL
     Route: 048
     Dates: start: 20021101
  2. NORMORIX MITE (AMILORIDE HYDROCHLORIDE, HYDROCHLOROTRHIAZIDE) [Concomitant]

REACTIONS (1)
  - CEREBROVASCULAR ACCIDENT [None]
